FAERS Safety Report 10548212 (Version 2)
Quarter: 2014Q4

REPORT INFORMATION
  Report Type: Spontaneous
  Country: JP (occurrence: JP)
  Receive Date: 20141028
  Receipt Date: 20141113
  Transmission Date: 20150529
  Serious: Yes (Other)
  Sender: FDA-Public Use
  Company Number: JP-PFIZER INC-2014293850

PATIENT
  Age: 82 Year
  Sex: Female

DRUGS (2)
  1. CABASER [Suspect]
     Active Substance: CABERGOLINE
     Indication: PARKINSON^S DISEASE
     Dosage: 1 MG, DAILY
     Route: 048
     Dates: start: 2007
  2. DEPAS [Suspect]
     Active Substance: ETIZOLAM
     Dosage: 3 MG, DAILY

REACTIONS (1)
  - Sudden onset of sleep [Unknown]

NARRATIVE: CASE EVENT DATE: 2014
